FAERS Safety Report 17580155 (Version 1)
Quarter: 2020Q1

REPORT INFORMATION
  Report Type: Spontaneous
  Country: US (occurrence: US)
  Receive Date: 20200320
  Receipt Date: 20200320
  Transmission Date: 20200409
  Serious: Yes (Hospitalization)
  Sender: FDA-Public Use
  Company Number: None

PATIENT
  Sex: Female

DRUGS (5)
  1. GABAPENTIN. [Concomitant]
     Active Substance: GABAPENTIN
  2. ESTRADIOL. [Concomitant]
     Active Substance: ESTRADIOL
  3. LEUPROLIDE [Concomitant]
     Active Substance: LEUPROLIDE
  4. PROGESTERONE 50MG/ML MDV 10ML [Suspect]
     Active Substance: PROGESTERONE
     Indication: INFERTILITY FEMALE
     Route: 048
     Dates: start: 20180213
  5. PRENATAL [Concomitant]
     Active Substance: VITAMINS

REACTIONS (1)
  - Hospitalisation [None]
